FAERS Safety Report 23079064 (Version 1)
Quarter: 2023Q4

REPORT INFORMATION
  Report Type: Spontaneous
  Country: CN (occurrence: CN)
  Receive Date: 20231018
  Receipt Date: 20231018
  Transmission Date: 20240110
  Serious: Yes (Life-Threatening, Hospitalization, Other)
  Sender: FDA-Public Use
  Company Number: CN-BAYER-2023A148482

PATIENT
  Age: 44 Year
  Sex: Female

DRUGS (1)
  1. ULTRAVIST [Suspect]
     Active Substance: IOPROMIDE
     Indication: Computerised tomogram
     Dosage: 60 ML, ONCE
     Route: 040
     Dates: start: 20231012, end: 20231012

REACTIONS (9)
  - Anaphylactic shock [Recovering/Resolving]
  - Loss of consciousness [Recovered/Resolved]
  - Hypotension [Recovered/Resolved]
  - Pruritus [Recovering/Resolving]
  - Eyelid oedema [Recovering/Resolving]
  - Respiratory rate increased [Recovering/Resolving]
  - Heart rate decreased [Recovering/Resolving]
  - Chest discomfort [Recovering/Resolving]
  - Hypoaesthesia [Recovering/Resolving]

NARRATIVE: CASE EVENT DATE: 20231012
